FAERS Safety Report 14701312 (Version 1)
Quarter: 2018Q1

REPORT INFORMATION
  Report Type: Spontaneous
  Country: US (occurrence: US)
  Receive Date: 20180328
  Receipt Date: 20180328
  Transmission Date: 20180509
  Serious: No
  Sender: FDA-Public Use
  Company Number: None

PATIENT
  Age: 87 Year
  Sex: Male
  Weight: 64.41 kg

DRUGS (1)
  1. MYTOMYCIN [Suspect]
     Active Substance: MITOMYCIN
     Dosage: ROUTE - INFUSION IN BLADDER?FREQUENCY - INFUSE FOR 6 WEEKS
     Dates: start: 20170724

REACTIONS (1)
  - Unevaluable event [None]

NARRATIVE: CASE EVENT DATE: 20180116
